FAERS Safety Report 6413280-8 (Version None)
Quarter: 2009Q4

REPORT INFORMATION
  Report Type: 
  Country: None (occurrence: None)
  Receive Date: 20091022
  Receipt Date: 20091022
  Transmission Date: 20100525
  Serious: Yes (Other)
  Sender: FDA-Public Use
  Company Number: None

PATIENT
  Sex: Female
  Weight: 55.7924 kg

DRUGS (2)
  1. NUVARING [Suspect]
     Indication: CONTRACEPTION
     Dosage: 1 RING CONTINUOUS USE CHANGE PER 4 WEEKS VAG
     Route: 067
     Dates: start: 20090614, end: 20091016
  2. NUVARING [Suspect]
     Indication: ENDOMETRIOSIS
     Dosage: 1 RING CONTINUOUS USE CHANGE PER 4 WEEKS VAG
     Route: 067
     Dates: start: 20090614, end: 20091016

REACTIONS (2)
  - MYOCARDIAL INFARCTION [None]
  - PALPITATIONS [None]
